FAERS Safety Report 10197717 (Version 1)
Quarter: 2014Q2

REPORT INFORMATION
  Report Type: Spontaneous
  Country: US (occurrence: US)
  Receive Date: 20140527
  Receipt Date: 20140527
  Transmission Date: 20141212
  Serious: No
  Sender: FDA-Public Use
  Company Number: US-BRISTOL-MYERS SQUIBB COMPANY-19934173

PATIENT
  Age: 73 Year
  Sex: Male
  Weight: 104.31 kg

DRUGS (7)
  1. PRAVACHOL [Suspect]
     Dosage: PRAVACHOL 20 MG FOR 10-15 YEARS, FROM THE MID 1980`S-2000
  2. AGGRENOX [Concomitant]
  3. UROXATRAL [Concomitant]
  4. ZOLPIDEM [Concomitant]
  5. LOVASTATIN [Concomitant]
  6. CO-Q-10 PLUS [Concomitant]
  7. LYRICA [Concomitant]

REACTIONS (1)
  - Myalgia [Unknown]
